FAERS Safety Report 7255023-4 (Version None)
Quarter: 2011Q1

REPORT INFORMATION
  Report Type: 
  Country: None (occurrence: None)
  Receive Date: 20110129
  Receipt Date: 20100315
  Transmission Date: 20110831
  Serious: No
  Sender: FDA-Public Use
  Company Number: US-ABBOTT-10P-163-0632788-00

PATIENT
  Sex: Female

DRUGS (4)
  1. HUMIRA [Suspect]
     Indication: CROHN'S DISEASE
     Route: 058
     Dates: start: 20091219
  2. SUCRALFATE [Concomitant]
     Indication: COLITIS ULCERATIVE
  3. CAPIDEX [Concomitant]
     Indication: COLITIS ULCERATIVE
  4. HUMIRA [Suspect]
     Indication: COLITIS ULCERATIVE

REACTIONS (2)
  - BACK PAIN [None]
  - KIDNEY INFECTION [None]
